FAERS Safety Report 8244740-5 (Version None)
Quarter: 2012Q1

REPORT INFORMATION
  Report Type: 
  Country: None (occurrence: None)
  Receive Date: 20120329
  Receipt Date: 20110310
  Transmission Date: 20120608
  Serious: No
  Sender: FDA-Public Use
  Company Number: US-MYLANLABS-2011S1004861

PATIENT
  Age: 54 Year
  Sex: Female

DRUGS (4)
  1. FENTANYL-100 [Suspect]
     Dosage: Q3D
     Route: 062
     Dates: start: 20101201
  2. MEDROXYPROGESTERONE [Concomitant]
     Route: 048
  3. ESTRADIOL [Concomitant]
     Route: 048
  4. ALPRAZOLAM [Concomitant]
     Route: 048

REACTIONS (1)
  - WITHDRAWAL SYNDROME [None]
